FAERS Safety Report 25984203 (Version 1)
Quarter: 2025Q4

REPORT INFORMATION
  Report Type: Spontaneous
  Country: EU (occurrence: EU)
  Receive Date: 20251031
  Receipt Date: 20251031
  Transmission Date: 20260119
  Serious: Yes (Death, Hospitalization)
  Sender: ABBVIE
  Company Number: None

PATIENT
  Age: 58 Year
  Sex: Male
  Weight: 123 kg

DRUGS (2)
  1. VENETOCLAX [Suspect]
     Active Substance: VENETOCLAX
     Indication: Myelodysplastic syndrome
     Route: 048
     Dates: start: 202505
  2. VIDAZA [Suspect]
     Active Substance: AZACITIDINE
     Indication: Myelodysplastic syndrome
     Dosage: FORM STRENGTH: 100 MG;
     Route: 058
     Dates: start: 202505

REACTIONS (3)
  - Pneumonia bacterial [Fatal]
  - Acute respiratory failure [Unknown]
  - Pancytopenia [Fatal]

NARRATIVE: CASE EVENT DATE: 20250828
